FAERS Safety Report 5225009-X (Version None)
Quarter: 2007Q1

REPORT INFORMATION
  Report Type: 
  Country: None (occurrence: None)
  Receive Date: 20070126
  Receipt Date: 20060908
  Transmission Date: 20070707
  Serious: Yes (Hospitalization)
  Sender: FDA-Public Use
  Company Number: 13504121

PATIENT
  Age: 61 Year
  Sex: Male

DRUGS (2)
  1. REVIA [Suspect]
     Indication: ALCOHOLISM
     Dosage: 50 MILLIGRAM 1 DAY ORAL
     Route: 048
     Dates: start: 20060621, end: 20060726
  2. AOTAL (ACAMPROSATE) [Concomitant]

REACTIONS (1)
  - THROMBOCYTOPENIA [None]
